FAERS Safety Report 13503469 (Version 1)
Quarter: 2017Q2

REPORT INFORMATION
  Report Type: Spontaneous
  Country: US (occurrence: US)
  Receive Date: 20170502
  Receipt Date: 20170502
  Transmission Date: 20170830
  Serious: Yes (Hospitalization)
  Sender: FDA-Public Use
  Company Number: US-LPDUSPRD-20170461

PATIENT
  Age: 69 Year
  Sex: Male

DRUGS (7)
  1. CIPROFLOXACIN OPHTHALMIC SOLUTION, USP (0755-01) [Suspect]
     Active Substance: CIPROFLOXACIN
     Dosage: UNKNOWN
     Route: 065
  2. AMIODARONE [Suspect]
     Active Substance: AMIODARONE
     Dosage: UNKNOWN
     Route: 065
  3. FLUPHENAZINE [Suspect]
     Active Substance: FLUPHENAZINE
     Dosage: UNKNOWN
  4. FLUOXETINE [Suspect]
     Active Substance: FLUOXETINE HYDROCHLORIDE
     Dosage: UNKNOWN
     Route: 065
  5. OLANZAPINE FOR INJECTION (0517-0955-01) [Suspect]
     Active Substance: OLANZAPINE
     Dosage: UNKNOWN
     Route: 065
  6. ROPINIROLE. [Suspect]
     Active Substance: ROPINIROLE
     Dosage: UNKNOWN
     Route: 065
  7. DIPHENHYDRAMINE. [Suspect]
     Active Substance: DIPHENHYDRAMINE
     Dosage: UNKNOWN
     Route: 065

REACTIONS (8)
  - Electrocardiogram QT prolonged [Unknown]
  - Mental status changes [Unknown]
  - Torsade de pointes [Unknown]
  - Clostridium difficile infection [Unknown]
  - Delirium [Unknown]
  - Sepsis [Unknown]
  - Ventricular tachycardia [Unknown]
  - Fatigue [Unknown]
